FAERS Safety Report 16253595 (Version 2)
Quarter: 2019Q2

REPORT INFORMATION
  Report Type: Report from Study
  Country: US (occurrence: US)
  Receive Date: 20190430
  Receipt Date: 20190530
  Transmission Date: 20190711
  Serious: Yes (Hospitalization, Other)
  Sender: FDA-Public Use
  Company Number: US-AMGEN-USASL2019046376

PATIENT
  Age: 48 Year
  Sex: Female

DRUGS (3)
  1. REPATHA [Suspect]
     Active Substance: EVOLOCUMAB
     Indication: BLOOD CHOLESTEROL INCREASED
     Dosage: 140 MILLIGRAM, Q2WK
     Route: 065
     Dates: start: 2019, end: 20190403
  2. REPATHA [Suspect]
     Active Substance: EVOLOCUMAB
     Indication: HYPERCHOLESTEROLAEMIA
     Dosage: 420 MILLIGRAM, QMO
     Route: 065
     Dates: start: 201903
  3. CABERGOLINE. [Concomitant]
     Active Substance: CABERGOLINE

REACTIONS (8)
  - Injection site hyperaesthesia [Not Recovered/Not Resolved]
  - Swelling [Unknown]
  - Urinary tract infection [Not Recovered/Not Resolved]
  - Limb discomfort [Unknown]
  - Hysterectomy [Recovering/Resolving]
  - Hypoaesthesia [Not Recovered/Not Resolved]
  - Drug administered in wrong device [Unknown]
  - Malaise [Unknown]

NARRATIVE: CASE EVENT DATE: 2019
